FAERS Safety Report 8407100-X (Version None)
Quarter: 2012Q2

REPORT INFORMATION
  Report Type: 
  Country: None (occurrence: None)
  Receive Date: 20120530
  Receipt Date: 20021016
  Transmission Date: 20120825
  Serious: Yes (Death)
  Sender: FDA-Public Use
  Company Number: 02100-JPN-02-0068

PATIENT
  Age: 73 Year
  Sex: Male
  Weight: 51 kg

DRUGS (3)
  1. LASIX [Concomitant]
  2. PLETAL [Suspect]
     Indication: THROMBOSIS PROPHYLAXIS
     Dosage: 100 MG, BID, ORAL
     Route: 048
     Dates: start: 20010201, end: 20020809
  3. ALDACTONE [Concomitant]

REACTIONS (17)
  - LYMPHADENITIS [None]
  - ATRIOVENTRICULAR BLOCK COMPLETE [None]
  - DIARRHOEA [None]
  - ENTEROCOCCAL SEPSIS [None]
  - GINGIVAL BLEEDING [None]
  - APLASTIC ANAEMIA [None]
  - LYMPHOCYTE MORPHOLOGY ABNORMAL [None]
  - PANCYTOPENIA [None]
  - NO THERAPEUTIC RESPONSE [None]
  - RESPIRATORY FAILURE [None]
  - IMMUNODEFICIENCY [None]
  - INTERSTITIAL LUNG DISEASE [None]
  - PETECHIAE [None]
  - CYTOGENETIC ABNORMALITY [None]
  - PNEUMONIA [None]
  - PYREXIA [None]
  - BLOOD DISORDER [None]
